FAERS Safety Report 14638773 (Version 1)
Quarter: 2018Q1

REPORT INFORMATION
  Report Type: Spontaneous
  Country: FR (occurrence: FR)
  Receive Date: 20180315
  Receipt Date: 20180315
  Transmission Date: 20180509
  Serious: Yes (Other)
  Sender: FDA-Public Use
  Company Number: FR-MERCK KGAA-2043744

PATIENT
  Age: 56 Year
  Sex: Female

DRUGS (2)
  1. NOVOTHYROX [Suspect]
     Active Substance: LEVOTHYROXINE SODIUM
     Indication: POST PROCEDURAL HYPOTHYROIDISM
     Route: 048
     Dates: start: 201704
  2. LEVOTHYROX NF [Suspect]
     Active Substance: LEVOTHYROXINE SODIUM
     Route: 048
     Dates: start: 201704

REACTIONS (15)
  - Arthralgia [Not Recovered/Not Resolved]
  - Irritability [None]
  - Abdominal pain [None]
  - Crying [None]
  - Grip strength decreased [None]
  - Nausea [None]
  - Disturbance in attention [None]
  - Fatigue [None]
  - Dizziness [Not Recovered/Not Resolved]
  - Asthenia [Not Recovered/Not Resolved]
  - Alopecia [Not Recovered/Not Resolved]
  - Insomnia [None]
  - Myalgia [Not Recovered/Not Resolved]
  - Gait disturbance [None]
  - Decreased interest [None]

NARRATIVE: CASE EVENT DATE: 2017
